FAERS Safety Report 19286929 (Version 2)
Quarter: 2021Q2

REPORT INFORMATION
  Report Type: Report from Study
  Country: None (occurrence: US)
  Receive Date: 20210522
  Receipt Date: 20210528
  Transmission Date: 20210717
  Serious: Yes (Hospitalization, Other)
  Sender: FDA-Public Use
  Company Number: US-ABBVIE-21K-163-3910886-00

PATIENT
  Age: 79 Year
  Sex: Female

DRUGS (5)
  1. PFIZER?BIONTECH COVID?19 VACCINE [Concomitant]
     Active Substance: TOZINAMERAN
     Indication: COVID-19 IMMUNISATION
     Dosage: PFIZER
     Route: 050
     Dates: start: 20210202, end: 20210202
  2. DUOPA [Suspect]
     Active Substance: CARBIDOPA\LEVODOPA
     Route: 050
     Dates: start: 20210521
  3. RYTARY [Suspect]
     Active Substance: CARBIDOPA\LEVODOPA
     Indication: PRODUCT USED FOR UNKNOWN INDICATION
     Route: 065
  4. PFIZER?BIONTECH COVID?19 VACCINE [Concomitant]
     Active Substance: TOZINAMERAN
     Dosage: PFIZER
     Route: 050
     Dates: start: 20210223, end: 20210223
  5. DUOPA [Suspect]
     Active Substance: CARBIDOPA\LEVODOPA
     Indication: PRODUCT USED FOR UNKNOWN INDICATION
     Route: 050
     Dates: start: 20190618, end: 20210517

REACTIONS (11)
  - Kyphosis [Recovering/Resolving]
  - Fatigue [Not Recovered/Not Resolved]
  - Back pain [Recovering/Resolving]
  - Dyskinesia [Recovered/Resolved]
  - Pulmonary embolism [Recovered/Resolved]
  - Atrial fibrillation [Unknown]
  - Device breakage [Unknown]
  - Spinal operation [Recovered/Resolved]
  - Spinal osteoarthritis [Recovering/Resolving]
  - Cardiac murmur [Unknown]
  - Device dislocation [Unknown]

NARRATIVE: CASE EVENT DATE: 201906
